FAERS Safety Report 10705869 (Version 2)
Quarter: 2015Q1

REPORT INFORMATION
  Report Type: Report from Study
  Country: CA (occurrence: CA)
  Receive Date: 20150113
  Receipt Date: 20150113
  Transmission Date: 20150721
  Serious: Yes (Death, Hospitalization)
  Sender: FDA-Public Use
  Company Number: CA-ABBVIE-14K-028-1306169-00

PATIENT
  Age: 71 Year
  Sex: Male

DRUGS (1)
  1. HUMIRA [Suspect]
     Active Substance: ADALIMUMAB
     Indication: RHEUMATOID ARTHRITIS
     Route: 058
     Dates: start: 20141022, end: 20141125

REACTIONS (5)
  - Pneumonia [Fatal]
  - Malaise [Fatal]
  - Oropharyngeal pain [Fatal]
  - Pneumonia [Recovered/Resolved]
  - Pharyngeal oedema [Fatal]

NARRATIVE: CASE EVENT DATE: 2014
